FAERS Safety Report 7347764-5 (Version None)
Quarter: 2011Q1

REPORT INFORMATION
  Report Type: 
  Country: None (occurrence: None)
  Receive Date: 20110302
  Receipt Date: 20110218
  Transmission Date: 20110831
  Serious: Yes (Other)
  Sender: FDA-Public Use
  Company Number: 2010-2951

PATIENT
  Age: 14 Year
  Sex: Female
  Weight: 16.9 kg

DRUGS (6)
  1. INCRELEX [Suspect]
     Indication: INSULIN-LIKE GROWTH FACTOR DECREASED
     Dosage: 88 UNITS (44 UNITSM 2 IN 1 D), SUBCUTANEOUS
     Route: 058
     Dates: start: 20100815
  2. ANTI-DEPRESSION MEDICATIONS (OTHER ANTIDEPRESSANTS) [Concomitant]
  3. NASONEX (MOMETASONE PUROATE) [Concomitant]
  4. OPTIVAR [Concomitant]
  5. ZYRTEC [Concomitant]
  6. PANTANASE (OLOPATADINE) [Concomitant]

REACTIONS (6)
  - DIZZINESS [None]
  - HEADACHE [None]
  - DISTURBANCE IN ATTENTION [None]
  - HYPOGLYCAEMIA [None]
  - FATIGUE [None]
  - HYPOACUSIS [None]
